FAERS Safety Report 4807773-4 (Version None)
Quarter: 2005Q4

REPORT INFORMATION
  Report Type: 
  Country: None (occurrence: None)
  Receive Date: 20051020
  Receipt Date: 20051006
  Transmission Date: 20060501
  Serious: Yes (Other)
  Sender: FDA-Public Use
  Company Number: 2005139190

PATIENT
  Age: 40 Year
  Sex: Female

DRUGS (1)
  1. SUDAFED PE (PHENYLEPHRINE) [Suspect]
     Indication: NASOPHARYNGITIS
     Dosage: 6 TABLETS TWICE, 5 HOURS APART, ORAL
     Route: 048
     Dates: start: 20051006, end: 20051006

REACTIONS (2)
  - ACCIDENTAL OVERDOSE [None]
  - HEADACHE [None]
